FAERS Safety Report 7996428-3 (Version None)
Quarter: 2011Q4

REPORT INFORMATION
  Report Type: 
  Country: None (occurrence: None)
  Receive Date: 20111220
  Receipt Date: 20111205
  Transmission Date: 20120403
  Serious: Yes (Other)
  Sender: FDA-Public Use
  Company Number: IN-WATSON-2011-21843

PATIENT
  Age: 2 Month
  Sex: Female

DRUGS (2)
  1. PREDNISOLONE [Suspect]
     Dosage: 3-4 MG/KG/DAY
     Route: 048
  2. PREDNISOLONE [Suspect]
     Indication: HAEMANGIOMA
     Dosage: 1.5 MG/KG/DAY
     Route: 048

REACTIONS (3)
  - WEIGHT INCREASED [None]
  - HYPERTENSION [None]
  - CUSHINGOID [None]
